FAERS Safety Report 4854789-8 (Version None)
Quarter: 2005Q4

REPORT INFORMATION
  Report Type: 
  Country: None (occurrence: None)
  Receive Date: 20051214
  Receipt Date: 20051214
  Transmission Date: 20060501
  Serious: Yes (Other)
  Sender: FDA-Public Use
  Company Number: None

PATIENT
  Age: 51 Year
  Sex: Female
  Weight: 104.3273 kg

DRUGS (1)
  1. KEFLEX [Suspect]
     Indication: CELLULITIS
     Dosage: 1 TAB-STRENGTH BID PO
     Route: 048
     Dates: start: 20050625, end: 20050703

REACTIONS (1)
  - BIPOLAR I DISORDER [None]
